FAERS Safety Report 15413244 (Version 1)
Quarter: 2018Q3

REPORT INFORMATION
  Report Type: Spontaneous
  Country: US (occurrence: US)
  Receive Date: 20180917
  Receipt Date: 20180917
  Transmission Date: 20181010
  Serious: Yes (Hospitalization)
  Sender: FDA-Public Use
  Company Number: None

PATIENT
  Age: 60 Year
  Sex: Female
  Weight: 76.8 kg

DRUGS (1)
  1. DOXIL [Suspect]
     Active Substance: DOXORUBICIN HYDROCHLORIDE
     Dates: end: 20180814

REACTIONS (11)
  - Diarrhoea [None]
  - Lethargy [None]
  - Blood glucose decreased [None]
  - Nausea [None]
  - Vomiting [None]
  - Pyrexia [None]
  - Flatulence [None]
  - Abdominal pain lower [None]
  - Hypophagia [None]
  - Streptococcal bacteraemia [None]
  - Anaemia of chronic disease [None]

NARRATIVE: CASE EVENT DATE: 20180830
